FAERS Safety Report 22166514 (Version 2)
Quarter: 2023Q2

REPORT INFORMATION
  Report Type: Spontaneous
  Country: CA (occurrence: CA)
  Receive Date: 20230403
  Receipt Date: 20230503
  Transmission Date: 20230721
  Serious: Yes (Death, Other)
  Sender: FDA-Public Use
  Company Number: CA-PFIZER INC-2020018934

PATIENT
  Age: 52 Year
  Sex: Female
  Weight: 57.6 kg

DRUGS (6)
  1. IBRANCE [Suspect]
     Active Substance: PALBOCICLIB
     Indication: Breast cancer metastatic
     Dosage: 125 MG, CYCLIC (21 DAYS, OFF 7 DAYS)
     Route: 048
     Dates: start: 20200115, end: 2020
  2. IBRANCE [Suspect]
     Active Substance: PALBOCICLIB
     Dosage: 75 MG, CYCLIC, ONCE DAILY FOR 21 DAYS, STOP FOR 7 DAYS
     Route: 048
     Dates: start: 20200927
  3. IBRANCE [Suspect]
     Active Substance: PALBOCICLIB
     Dosage: 75 MG, CYCLIC, ONCE DAILY FOR 21 DAYS, STOP FOR 7 DAYS
     Route: 048
     Dates: start: 20210709
  4. CANDESARTAN [Concomitant]
     Active Substance: CANDESARTAN
     Dosage: UNK
  5. LETROZOLE [Concomitant]
     Active Substance: LETROZOLE
     Indication: Breast cancer metastatic
     Dosage: 2.5 MG, 1X/DAY
     Route: 048
     Dates: start: 20190423
  6. HYDROCHLOROTHIAZIDE [Concomitant]
     Active Substance: HYDROCHLOROTHIAZIDE
     Dosage: 12.5 MG, DAILY
     Route: 048

REACTIONS (5)
  - Death [Fatal]
  - Febrile neutropenia [Unknown]
  - Weight fluctuation [Unknown]
  - Stomatitis [Unknown]
  - Dysuria [Unknown]

NARRATIVE: CASE EVENT DATE: 20200101
